FAERS Safety Report 25633486 (Version 2)
Quarter: 2025Q3

REPORT INFORMATION
  Report Type: Report from Study
  Country: US (occurrence: US)
  Receive Date: 20250801
  Receipt Date: 20250908
  Transmission Date: 20251020
  Serious: No
  Sender: SUNOVION
  Company Number: US-SUMITOMO PHARMA SWITZERLAND GMBH-2025SPA009709

PATIENT
  Age: 79 Year
  Sex: Male

DRUGS (19)
  1. ORGOVYX [Suspect]
     Active Substance: RELUGOLIX
     Indication: Prostate cancer
     Route: 048
     Dates: start: 20250606, end: 20250606
  2. ORGOVYX [Suspect]
     Active Substance: RELUGOLIX
     Dosage: 120 MG, QD
     Route: 048
     Dates: start: 20250607
  3. LISINOPRIL [Concomitant]
     Active Substance: LISINOPRIL
  4. DULOXETINE [Concomitant]
     Active Substance: DULOXETINE
  5. URSODIOL [Concomitant]
     Active Substance: URSODIOL
  6. VITAMIN B [Concomitant]
     Active Substance: VITAMIN B
  7. DICYCLOMINE [Concomitant]
     Active Substance: DICYCLOMINE HYDROCHLORIDE
  8. EYE HEALTH [Concomitant]
     Active Substance: AMINO ACIDS\BARLEY MALT
  9. DIETARY SUPPLEMENT\HERBALS\MILK THISTLE [Concomitant]
     Active Substance: MILK THISTLE
  10. GLUCOSAMINE [Concomitant]
     Active Substance: GLUCOSAMINE
  11. ANTACID [Concomitant]
     Active Substance: ALUMINUM HYDROXIDE\CALCIUM CARBONATE\DIMETHICONE\MAGNESIUM HYDROXIDE
  12. OMEPRAZOLE [Concomitant]
     Active Substance: OMEPRAZOLE
  13. IBUPROFEN [Concomitant]
     Active Substance: IBUPROFEN
  14. TIMOLOL MALEATE [Concomitant]
     Active Substance: TIMOLOL MALEATE
  15. KETOROLAC [Concomitant]
     Active Substance: KETOROLAC TROMETHAMINE
  16. LATANOPROST [Concomitant]
     Active Substance: LATANOPROST
  17. REFRESH CLASSIC [Concomitant]
     Active Substance: POLYVINYL ALCOHOL\POVIDONE
  18. SALINE [Concomitant]
     Active Substance: SODIUM CHLORIDE
     Route: 045
  19. XGEVA [Concomitant]
     Active Substance: DENOSUMAB

REACTIONS (5)
  - Erythema [Unknown]
  - Nausea [Unknown]
  - Fatigue [Unknown]
  - Hot flush [Not Recovered/Not Resolved]
  - Back pain [Unknown]

NARRATIVE: CASE EVENT DATE: 20250801
